FAERS Safety Report 6212005-9 (Version None)
Quarter: 2009Q2

REPORT INFORMATION
  Report Type: 
  Country: None (occurrence: None)
  Receive Date: 20090602
  Receipt Date: 20090529
  Transmission Date: 20091009
  Serious: Yes (Death)
  Sender: FDA-Public Use
  Company Number: JP-AVENTIS-200911401JP

PATIENT
  Age: 68 Year
  Sex: Male
  Weight: 67 kg

DRUGS (9)
  1. TAXOTERE [Suspect]
     Route: 041
     Dates: start: 20081212, end: 20090421
  2. DEXAMETHASONE [Concomitant]
     Route: 048
     Dates: start: 20081212, end: 20090429
  3. ESTRACYT                           /00327002/ [Concomitant]
     Route: 048
     Dates: start: 20081212, end: 20090429
  4. LOXOPROFEN [Concomitant]
     Route: 048
     Dates: start: 20071108, end: 20090429
  5. HANGE-SHASHIN-TO [Concomitant]
     Route: 048
     Dates: start: 20090210, end: 20090429
  6. JUZENTAIHOTO [Concomitant]
     Route: 048
     Dates: start: 20090303, end: 20090429
  7. FLIVAS [Concomitant]
     Route: 048
     Dates: start: 20061221, end: 20090429
  8. PROTECADIN [Concomitant]
     Route: 048
     Dates: end: 20090429
  9. EVIPROSTAT                         /01150001/ [Concomitant]
     Dosage: DOSE: 3 TABLETS
     Route: 048
     Dates: start: 20061221, end: 20090429

REACTIONS (1)
  - INTERSTITIAL LUNG DISEASE [None]
